FAERS Safety Report 26021248 (Version 1)
Quarter: 2025Q4

REPORT INFORMATION
  Report Type: Spontaneous
  Country: US (occurrence: US)
  Receive Date: 20251110
  Receipt Date: 20251110
  Transmission Date: 20260118
  Serious: Yes (Other)
  Sender: AMGEN
  Company Number: US-AMGEN-USASP2025219493

PATIENT
  Age: 8 Year

DRUGS (1)
  1. RITUXIMAB [Suspect]
     Active Substance: RITUXIMAB
     Indication: Glanzmann^s disease
     Dosage: UNK
     Route: 065

REACTIONS (2)
  - Thrombosis in device [Unknown]
  - Off label use [Unknown]
